FAERS Safety Report 7148550-1 (Version None)
Quarter: 2010Q4

REPORT INFORMATION
  Report Type: 
  Country: None (occurrence: None)
  Receive Date: 20101209
  Receipt Date: 20101202
  Transmission Date: 20110411
  Serious: Yes (Hospitalization)
  Sender: FDA-Public Use
  Company Number: US-BRISTOL-MYERS SQUIBB COMPANY-15410640

PATIENT
  Age: 15 Year
  Sex: Female

DRUGS (4)
  1. TRAZODONE HCL [Suspect]
  2. QUETIAPINE FUMARATE [Suspect]
  3. CLONIDINE [Suspect]
  4. RISPERIDONE [Suspect]

REACTIONS (7)
  - BUNDLE BRANCH BLOCK LEFT [None]
  - DELIRIUM [None]
  - ELECTROCARDIOGRAM QT PROLONGED [None]
  - HYPOTENSION [None]
  - OVERDOSE [None]
  - SOMNOLENCE [None]
  - TACHYCARDIA [None]
